FAERS Safety Report 5977692-9 (Version None)
Quarter: 2008Q4

REPORT INFORMATION
  Report Type: 
  Country: None (occurrence: None)
  Receive Date: 20081203
  Receipt Date: 20081124
  Transmission Date: 20090506
  Serious: Yes (Hospitalization)
  Sender: FDA-Public Use
  Company Number: GB-ROCHE-599262

PATIENT
  Sex: Male
  Weight: 146.1 kg

DRUGS (5)
  1. ORLISTAT [Suspect]
     Indication: OBESITY
     Route: 048
     Dates: start: 20080822, end: 20080924
  2. METFORMIN HCL [Concomitant]
     Route: 048
  3. PIOGLITAZONE [Concomitant]
     Route: 048
  4. ASPIRIN [Concomitant]
     Dosage: INDICATION REPORTED AS BLOOD.
     Route: 048
  5. IBRUFEN [Concomitant]
     Indication: PAIN
     Route: 048

REACTIONS (1)
  - RENAL FAILURE [None]
